FAERS Safety Report 5991247-1 (Version None)
Quarter: 2008Q4

REPORT INFORMATION
  Report Type: 
  Country: None (occurrence: None)
  Receive Date: 20081202
  Receipt Date: 20080207
  Transmission Date: 20090506
  Serious: Yes (Disabling)
  Sender: FDA-Public Use
  Company Number: WAES 0802USA01576

PATIENT
  Age: 69 Year
  Sex: Female
  Weight: 65.7716 kg

DRUGS (8)
  1. FOSAMAX [Suspect]
     Indication: OSTEOPOROSIS
     Dosage: 70 MG/WKY/PO
     Route: 048
     Dates: start: 20011201, end: 20071001
  2. AVONEX [Concomitant]
  3. BENEFIBER [Concomitant]
  4. HYZAAR [Concomitant]
  5. PROZAC [Concomitant]
  6. SOLU-MEDROL [Concomitant]
  7. ZOCOR [Concomitant]
  8. WARFARIN [Concomitant]

REACTIONS (4)
  - ABDOMINAL PAIN [None]
  - ARTHRALGIA [None]
  - MUSCULOSKELETAL CHEST PAIN [None]
  - MYALGIA [None]
